FAERS Safety Report 7448108-0 (Version None)
Quarter: 2011Q2

REPORT INFORMATION
  Report Type: 
  Country: None (occurrence: None)
  Receive Date: 20110429
  Receipt Date: 20100316
  Transmission Date: 20111010
  Serious: No
  Sender: FDA-Public Use
  Company Number: US-ASTRAZENECA-2010SE11508

PATIENT
  Age: 62 Year
  Sex: Female
  Weight: 62.6 kg

DRUGS (5)
  1. ADAVAN [Concomitant]
  2. NEXIUM [Suspect]
     Route: 048
  3. OSTEO BI-FLEX [Concomitant]
  4. VOLTAREN [Suspect]
     Indication: SPINAL OSTEOARTHRITIS
     Route: 061
     Dates: start: 20100218, end: 20100221
  5. CALCIUM [Concomitant]

REACTIONS (13)
  - DEPRESSED MOOD [None]
  - DRUG ADMINISTERED AT INAPPROPRIATE SITE [None]
  - BRADYPHRENIA [None]
  - DECREASED APPETITE [None]
  - PAIN [None]
  - CRYING [None]
  - DIARRHOEA [None]
  - ASTHENIA [None]
  - DYSPNOEA [None]
  - MALAISE [None]
  - NAUSEA [None]
  - COUGH [None]
  - FEELING ABNORMAL [None]
